FAERS Safety Report 4845568-6 (Version None)
Quarter: 2005Q4

REPORT INFORMATION
  Report Type: 
  Country: None (occurrence: None)
  Receive Date: 20051205
  Receipt Date: 20051125
  Transmission Date: 20060501
  Serious: Yes (Other)
  Sender: FDA-Public Use
  Company Number: GB-MERCK-0511GBR00151

PATIENT
  Age: 70 Year
  Sex: Male
  Weight: 80 kg

DRUGS (4)
  1. VIOXX [Suspect]
     Indication: RHEUMATOID ARTHRITIS
     Route: 048
     Dates: start: 20021007, end: 20040811
  2. PSYLLIUM HUSK [Concomitant]
     Route: 065
     Dates: start: 20021007
  3. OMEPRAZOLE [Concomitant]
     Route: 065
     Dates: start: 20040623
  4. INDOMETHACIN [Concomitant]
     Route: 065
     Dates: start: 20050121

REACTIONS (1)
  - CEREBROVASCULAR ACCIDENT [None]
